FAERS Safety Report 5558929-7 (Version None)
Quarter: 2007Q4

REPORT INFORMATION
  Report Type: 
  Country: None (occurrence: None)
  Receive Date: 20071214
  Receipt Date: 20070910
  Transmission Date: 20080405
  Serious: No
  Sender: FDA-Public Use
  Company Number: US-ABBOTT-07P-163-0416968-00

PATIENT
  Sex: Female
  Weight: 70.37 kg

DRUGS (5)
  1. HUMIRA [Suspect]
     Indication: CROHN'S DISEASE
     Route: 058
     Dates: start: 20070925
  2. HUMIRA [Suspect]
     Route: 058
     Dates: start: 20070911
  3. HUMIRA [Suspect]
     Route: 058
     Dates: start: 20070828
  4. HUMIRA [Suspect]
     Route: 058
     Dates: start: 20070827
  5. AZATHIOPRINE [Concomitant]
     Indication: CROHN'S DISEASE

REACTIONS (2)
  - FATIGUE [None]
  - MUSCLE SPASMS [None]
